FAERS Safety Report 5826594-7 (Version None)
Quarter: 2008Q3

REPORT INFORMATION
  Report Type: 
  Country: None (occurrence: None)
  Receive Date: 20080730
  Receipt Date: 20080725
  Transmission Date: 20090109
  Serious: Yes (Other)
  Sender: FDA-Public Use
  Company Number: US-RANBAXY-2008US-16674

PATIENT

DRUGS (5)
  1. ISOTRETINOIN [Suspect]
     Indication: ACNE
     Dosage: 40 MG, BID
     Route: 048
  2. ACCUTANE [Suspect]
     Indication: ACNE
     Dosage: 40MG
     Dates: start: 20080402
  3. CLARAVIS [Suspect]
     Indication: ACNE
     Dosage: 40 MG,
     Route: 048
     Dates: start: 20080403
  4. CLARAVIS [Suspect]
     Dosage: 30MG
     Route: 048
     Dates: start: 20080506
  5. ACCUTANE [Suspect]
     Dosage: 40MG
     Route: 048
     Dates: start: 20080611, end: 20080620

REACTIONS (3)
  - ANGER [None]
  - DEPRESSION [None]
  - SUICIDAL IDEATION [None]
